FAERS Safety Report 21625694 (Version 2)
Quarter: 2023Q4

REPORT INFORMATION
  Report Type: Spontaneous
  Country: US (occurrence: None)
  Receive Date: 20221122
  Receipt Date: 20231126
  Transmission Date: 20240110
  Serious: No
  Sender: FDA-Public Use
  Company Number: US-ROCHE-3182521

PATIENT
  Age: 52 Year
  Sex: Female

DRUGS (6)
  1. HERCEPTIN [Suspect]
     Active Substance: TRASTUZUMAB
     Indication: Breast cancer metastatic
     Route: 041
     Dates: start: 20220819
  2. HERCEPTIN [Suspect]
     Active Substance: TRASTUZUMAB
     Route: 041
     Dates: start: 20220715
  3. VERZENIO [Concomitant]
     Active Substance: ABEMACICLIB
     Indication: Breast cancer metastatic
  4. ARIMIDEX [Concomitant]
     Active Substance: ANASTROZOLE
     Indication: Breast cancer metastatic
  5. LUPRON [Concomitant]
     Active Substance: LEUPROLIDE ACETATE
     Indication: Breast cancer metastatic
  6. XGEVA [Concomitant]
     Active Substance: DENOSUMAB
     Indication: Breast cancer metastatic

REACTIONS (6)
  - Hypoacusis [Unknown]
  - Hypermetropia [Unknown]
  - Back pain [Unknown]
  - Fatigue [Unknown]
  - Asthenia [Unknown]
  - Diplopia [Unknown]
